FAERS Safety Report 5792481-6 (Version None)
Quarter: 2008Q2

REPORT INFORMATION
  Report Type: 
  Country: None (occurrence: None)
  Receive Date: 20080626
  Receipt Date: 20080619
  Transmission Date: 20081010
  Serious: Yes (Hospitalization)
  Sender: FDA-Public Use
  Company Number: US-PFIZER INC-2008046903

PATIENT
  Sex: Female
  Weight: 55 kg

DRUGS (7)
  1. SU-011,248 [Suspect]
     Indication: BREAST CANCER
     Route: 048
  2. COMPAZINE [Concomitant]
     Route: 048
  3. ZOFRAN [Concomitant]
     Route: 048
     Dates: start: 20080521, end: 20080521
  4. PROZAC [Concomitant]
     Route: 048
     Dates: start: 20080520
  5. COZAAR [Concomitant]
     Route: 048
  6. LIPITOR [Concomitant]
     Route: 048
  7. HYDROCODONE BITARTRATE + ACETAMINOPHEN [Concomitant]
     Route: 048
     Dates: start: 20071101

REACTIONS (3)
  - DUODENITIS [None]
  - OESOPHAGITIS [None]
  - VOMITING [None]
